FAERS Safety Report 25057503 (Version 2)
Quarter: 2025Q3

REPORT INFORMATION
  Report Type: Spontaneous
  Country: US (occurrence: US)
  Receive Date: 20250310
  Receipt Date: 20250810
  Transmission Date: 20251021
  Serious: No
  Sender: ALEXION PHARMACEUTICALS
  Company Number: US-AstraZeneca-CH-00820536A

PATIENT
  Sex: Female

DRUGS (1)
  1. FARXIGA [Suspect]
     Active Substance: DAPAGLIFLOZIN PROPANEDIOL
     Indication: Type 2 diabetes mellitus
     Route: 065

REACTIONS (14)
  - Fungal infection [Not Recovered/Not Resolved]
  - Peripheral swelling [Unknown]
  - Haemorrhoids [Unknown]
  - Eye infection [Unknown]
  - Pruritus [Unknown]
  - Contusion [Unknown]
  - Haemorrhoidal haemorrhage [Unknown]
  - Panic attack [Unknown]
  - Eye pruritus [Unknown]
  - Inflammation [Unknown]
  - Erythema [Unknown]
  - Fear [Unknown]
  - Therapy change [Unknown]
  - Therapy cessation [Unknown]
